FAERS Safety Report 7522475-1 (Version None)
Quarter: 2011Q2

REPORT INFORMATION
  Report Type: 
  Country: None (occurrence: None)
  Receive Date: 20110603
  Receipt Date: 20110531
  Transmission Date: 20111010
  Serious: Yes (Hospitalization)
  Sender: FDA-Public Use
  Company Number: US-ROXANE LABORATORIES, INC.-2011-RO-00751RO

PATIENT
  Age: 59 Year
  Sex: Female
  Weight: 81 kg

DRUGS (20)
  1. METFORMIN HCL [Concomitant]
     Dates: start: 20091001
  2. CICLESONIDE [Concomitant]
     Dates: start: 20100501
  3. ALBUTEROL [Concomitant]
  4. INVESTIGATIONAL DRUG [Suspect]
     Indication: RHEUMATOID ARTHRITIS
     Dosage: 20 MG
     Route: 048
     Dates: start: 20101105, end: 20110215
  5. LANTUS [Concomitant]
     Dates: start: 20100916
  6. PROCHLORPERAZINE TAB [Concomitant]
     Dates: start: 20080101
  7. LORAZEPAM [Concomitant]
     Dates: start: 20080101
  8. ADVAIR DISKUS 100/50 [Concomitant]
     Dates: start: 20091001
  9. ZOCOR [Concomitant]
     Dosage: 40 MG
     Dates: start: 19850101
  10. AMLODIPINE [Concomitant]
     Dates: start: 19850101
  11. TYLENOL-500 [Concomitant]
  12. POTASSIUM CHLORIDE [Concomitant]
     Dates: start: 20090801
  13. METHOTREXATE [Suspect]
     Indication: RHEUMATOID ARTHRITIS
     Route: 048
     Dates: start: 19850101
  14. CYMBALTA [Concomitant]
     Dosage: 60 MG
     Route: 048
     Dates: start: 20091101
  15. PREDNISONE [Suspect]
     Indication: RHEUMATOID ARTHRITIS
     Dosage: 10 MG
     Route: 048
     Dates: start: 20100719
  16. OXYCODONE HCL [Concomitant]
     Dates: start: 20080101
  17. FOLIC ACID [Concomitant]
     Dates: start: 20100701
  18. IBUPROFEN [Concomitant]
     Dates: start: 20080101
  19. VENTOLIN [Concomitant]
     Dates: start: 20090701
  20. PREDNISONE [Suspect]
     Dosage: 20 MG
     Route: 048

REACTIONS (3)
  - RESPIRATORY FAILURE [None]
  - ASTHENIA [None]
  - PNEUMONIA [None]
